FAERS Safety Report 25196591 (Version 1)
Quarter: 2025Q2

REPORT INFORMATION
  Report Type: Spontaneous
  Country: US (occurrence: US)
  Receive Date: 20250415
  Receipt Date: 20250415
  Transmission Date: 20250716
  Serious: No
  Sender: GRANULES INDIA
  Company Number: US-GRANULES-US-2025GRASPO00164

PATIENT

DRUGS (1)
  1. METFORMIN HYDROCHLORIDE [Suspect]
     Active Substance: METFORMIN HYDROCHLORIDE
     Indication: Product used for unknown indication
     Route: 065

REACTIONS (4)
  - Gastrointestinal disorder [Unknown]
  - Thirst [Unknown]
  - Asthenia [Unknown]
  - Fatigue [Unknown]
